FAERS Safety Report 4871200-1 (Version None)
Quarter: 2005Q4

REPORT INFORMATION
  Report Type: 
  Country: None (occurrence: None)
  Receive Date: 20051229
  Receipt Date: 20051216
  Transmission Date: 20060501
  Serious: No
  Sender: FDA-Public Use
  Company Number: US200512002991

PATIENT
  Age: 56 Year
  Sex: Female

DRUGS (2)
  1. CYMBALTA [Suspect]
     Indication: FIBROMYALGIA
     Dosage: SEE IMAGE
     Dates: start: 20040101
  2. FORTEO (TERIPARATIDE) [Concomitant]

REACTIONS (3)
  - CHROMATURIA [None]
  - DYSPEPSIA [None]
  - LIVER FUNCTION TEST ABNORMAL [None]
